FAERS Safety Report 10361996 (Version 1)
Quarter: 2014Q3

REPORT INFORMATION
  Report Type: Spontaneous
  Country: GB (occurrence: GB)
  Receive Date: 20140805
  Receipt Date: 20140805
  Transmission Date: 20150326
  Serious: Yes (Death, Hospitalization)
  Sender: FDA-Public Use
  Company Number: GB-RANBAXY-2014RR-84002

PATIENT
  Age: 58 Year
  Sex: Female

DRUGS (9)
  1. FLUCLOXACILLIN [Suspect]
     Active Substance: FLUCLOXACILLIN
     Indication: OEDEMA PERIPHERAL
     Dosage: 500 MG, FOUR TIMES/DAY
     Route: 048
     Dates: start: 20120530, end: 20120607
  2. RITUXIMAB [Suspect]
     Active Substance: RITUXIMAB
     Indication: NON-HODGKIN^S LYMPHOMA
     Dosage: 990 MG, DAY 1 OF EACH 28 DAY CYCLE
     Route: 042
     Dates: start: 20120530, end: 20120530
  3. METOCLOPRAMIDE. [Concomitant]
     Active Substance: METOCLOPRAMIDE
     Indication: NAUSEA
     Dosage: 10 MG, 3 TIMES A DAY
     Route: 048
     Dates: end: 20120607
  4. CO-AMOXICLAV [Suspect]
     Active Substance: AMOXICILLIN\CLAVULANIC ACID
     Indication: PRODUCT USED FOR UNKNOWN INDICATION
     Dosage: 625 MG, 3 TIMES A DAY
     Route: 048
     Dates: start: 20120613, end: 20120613
  5. MAGNESIUM OXIDE. [Concomitant]
     Active Substance: MAGNESIUM OXIDE
     Indication: MAGNESIUM DEFICIENCY
     Dosage: 2 DF, TWO TIMES A DAY
     Route: 065
     Dates: start: 20120531, end: 20120613
  6. TINZAPARIN SODIUM [Concomitant]
     Active Substance: TINZAPARIN SODIUM
     Indication: PROPHYLAXIS
     Dosage: 4500 UNITS A DAY
     Route: 058
     Dates: start: 20120530
  7. BENDAMUSTINE [Suspect]
     Active Substance: BENDAMUSTINE
     Indication: NON-HODGKIN^S LYMPHOMA
     Dosage: 225 MG, DAYS 1 AND 2 OF EACH 28 DAY CYCLE
     Route: 042
     Dates: start: 20120530, end: 20120531
  8. FLUCLOXACILLIN [Suspect]
     Active Substance: FLUCLOXACILLIN
     Indication: OEDEMA PERIPHERAL
     Dosage: 2 G, FOUR TIMES/DAY
     Route: 042
     Dates: start: 20120622, end: 20120624
  9. AMITRIPTYLINE [Concomitant]
     Active Substance: AMITRIPTYLINE
     Indication: PAIN
     Dosage: 10 MG, DAILY
     Route: 048
     Dates: start: 20120601

REACTIONS (7)
  - Pyrexia [Recovered/Resolved]
  - Diarrhoea [Not Recovered/Not Resolved]
  - Pain in extremity [Not Recovered/Not Resolved]
  - Cellulitis [Not Recovered/Not Resolved]
  - Non-Hodgkin^s lymphoma [Fatal]
  - Renal failure [Not Recovered/Not Resolved]
  - Disease progression [Fatal]

NARRATIVE: CASE EVENT DATE: 20120617
